FAERS Safety Report 24108230 (Version 1)
Quarter: 2024Q3

REPORT INFORMATION
  Report Type: Report from Study
  Country: TW (occurrence: None)
  Receive Date: 20240718
  Receipt Date: 20240718
  Transmission Date: 20241016
  Serious: Yes (Disabling, Other)
  Sender: ASTRAZENECA
  Company Number: 2020SE18440

PATIENT
  Age: 57 Year
  Sex: Female

DRUGS (1)
  1. TAGRISSO [Suspect]
     Active Substance: OSIMERTINIB
     Indication: Non-small cell lung cancer
     Route: 048
     Dates: start: 201810

REACTIONS (4)
  - Vascular parkinsonism [Not Recovered/Not Resolved]
  - Dementia [Not Recovered/Not Resolved]
  - Persistent depressive disorder [Not Recovered/Not Resolved]
  - Bronchitis [Unknown]

NARRATIVE: CASE EVENT DATE: 20190701
